FAERS Safety Report 6308730-1 (Version None)
Quarter: 2009Q3

REPORT INFORMATION
  Report Type: 
  Country: None (occurrence: None)
  Receive Date: 20090813
  Receipt Date: 20080328
  Transmission Date: 20100115
  Serious: No
  Sender: FDA-Public Use
  Company Number: US-ALLERGAN-0803875US

PATIENT
  Age: 64 Year
  Sex: Female

DRUGS (6)
  1. COMBIGAN [Suspect]
     Indication: GLAUCOMA
     Dosage: UNK, BID
     Route: 047
     Dates: start: 20080325, end: 20080328
  2. LISINOPRIL [Concomitant]
     Indication: HYPERTENSION
     Dosage: 20 MG, QAM
     Route: 048
  3. NORVASC [Concomitant]
     Indication: HYPERTENSION
     Dosage: 5 MG, QPM
     Route: 048
  4. GLUCOSAMINE W/CHONDROITIN SULFATE [Concomitant]
     Indication: ARTHRALGIA
     Route: 048
  5. LOVAZA [Concomitant]
     Route: 048
  6. OMEGA-6 FATTY ACIDS [Concomitant]
     Route: 048

REACTIONS (3)
  - BLOOD PRESSURE FLUCTUATION [None]
  - HEADACHE [None]
  - INSOMNIA [None]
